FAERS Safety Report 16382447 (Version 11)
Quarter: 2020Q2

REPORT INFORMATION
  Report Type: Report from Study
  Country: DE (occurrence: DE)
  Receive Date: 20190603
  Receipt Date: 20200612
  Transmission Date: 20200713
  Serious: Yes (Hospitalization, Other)
  Sender: FDA-Public Use
  Company Number: DE-ROCHE-2314391

PATIENT
  Age: 52 Year
  Sex: Female
  Weight: 62 kg

DRUGS (13)
  1. BIFITERAL [Concomitant]
     Active Substance: LACTULOSE
     Indication: CONSTIPATION
     Route: 048
     Dates: start: 20180901, end: 20190503
  2. ALLOPURINOL. [Concomitant]
     Active Substance: ALLOPURINOL
     Route: 048
  3. PALLADON [Concomitant]
     Active Substance: HYDROMORPHONE
     Indication: CHEST PAIN
     Dosage: ONE PER DAY IF REQUIRED
     Route: 048
     Dates: start: 20180901
  4. BISOPROLOL [Concomitant]
     Active Substance: BISOPROLOL
     Indication: HYPERTENSION
     Route: 065
     Dates: start: 20120101
  5. TORASEMIDE [Concomitant]
     Active Substance: TORSEMIDE
     Indication: PLEURAL EFFUSION
     Route: 048
     Dates: start: 20180901, end: 20190325
  6. TORASEMIDE [Concomitant]
     Active Substance: TORSEMIDE
     Route: 048
     Dates: start: 20190326
  7. SALBUTAMOL-RATIOPHARM N [Concomitant]
     Indication: DYSPNOEA
     Route: 055
     Dates: start: 20181001
  8. MOVICOL [Concomitant]
     Active Substance: POLYETHYLENE GLYCOL 3350\POTASSIUM CHLORIDE\SODIUM BICARBONATE\SODIUM CHLORIDE
     Indication: CONSTIPATION
     Route: 048
     Dates: start: 20180909
  9. ATEZOLIZUMAB. [Suspect]
     Active Substance: ATEZOLIZUMAB
     Indication: NON-SMALL CELL LUNG CANCER
     Dosage: ON 11/JUN/2019, SHE RECEIVED LAST DOSE OF ATEZOLIZUMAB PRIOR TO EVENT ONSET.?ON 24/MAY/2019, ATEZOLI
     Route: 042
     Dates: start: 20190411, end: 20190524
  10. ALENDRONIC ACID [Concomitant]
     Active Substance: ALENDRONIC ACID
     Route: 048
     Dates: start: 20181003
  11. OXYGEN. [Concomitant]
     Active Substance: OXYGEN
     Route: 055
  12. NOVAMINSULFON [Concomitant]
     Active Substance: METAMIZOLE
     Indication: CHEST PAIN
     Dosage: 500 MG/ML
     Route: 048
     Dates: start: 20180914
  13. CITALOPRAM [Concomitant]
     Active Substance: CITALOPRAM HYDROBROMIDE
     Indication: DEPRESSION
     Route: 048
     Dates: start: 20130101

REACTIONS (13)
  - Anaemia [Recovered/Resolved with Sequelae]
  - Dyspepsia [Not Recovered/Not Resolved]
  - Hyperkalaemia [Recovered/Resolved]
  - Hypertension [Recovered/Resolved]
  - Pruritus [Recovered/Resolved]
  - Vomiting [Recovered/Resolved]
  - Hypercalcaemia [Recovered/Resolved]
  - Acute kidney injury [Not Recovered/Not Resolved]
  - Right ventricular failure [Recovered/Resolved with Sequelae]
  - Urinary tract infection [Recovered/Resolved]
  - Dehydration [Recovered/Resolved]
  - Nausea [Recovered/Resolved]
  - Autoimmune nephritis [Not Recovered/Not Resolved]

NARRATIVE: CASE EVENT DATE: 20190418
